FAERS Safety Report 17840042 (Version 1)
Quarter: 2020Q2

REPORT INFORMATION
  Report Type: Spontaneous
  Country: US (occurrence: US)
  Receive Date: 20200528
  Receipt Date: 20200528
  Transmission Date: 20200714
  Serious: No
  Sender: FDA-Public Use
  Company Number: None

PATIENT
  Age: 73 Year
  Sex: Male

DRUGS (1)
  1. TELOTRISTAT ETHYL (TELOTRISTAT ETHYL 250MG TAB) [Suspect]
     Active Substance: TELOTRISTAT ETHYL
     Route: 048
     Dates: start: 20200410, end: 20200419

REACTIONS (6)
  - Abdominal distension [None]
  - Anger [None]
  - Constipation [None]
  - Agitation [None]
  - Mood altered [None]
  - Abdominal discomfort [None]

NARRATIVE: CASE EVENT DATE: 20200419
